FAERS Safety Report 22620708 (Version 1)
Quarter: 2023Q2

REPORT INFORMATION
  Report Type: Spontaneous
  Country: US (occurrence: US)
  Receive Date: 20230620
  Receipt Date: 20230620
  Transmission Date: 20230722
  Serious: No
  Sender: FDA-Public Use
  Company Number: US-BRISTOL-MYERS SQUIBB COMPANY-2023-086757

PATIENT
  Age: 66 Year
  Sex: Female

DRUGS (1)
  1. REVLIMID [Suspect]
     Active Substance: LENALIDOMIDE
     Indication: Plasma cell myeloma
     Dosage: FREQ : 1 DAILY X 21 DAYS, 7 DAYS OFF
     Route: 048
     Dates: start: 20220720

REACTIONS (3)
  - Headache [Unknown]
  - Skin discolouration [Unknown]
  - Muscle spasms [Unknown]
